FAERS Safety Report 8377217-7 (Version None)
Quarter: 2012Q2

REPORT INFORMATION
  Report Type: 
  Country: None (occurrence: None)
  Receive Date: 20120521
  Receipt Date: 20120510
  Transmission Date: 20120825
  Serious: Yes (Other)
  Sender: FDA-Public Use
  Company Number: 2010JP001659

PATIENT
  Age: 13 Year
  Sex: Female
  Weight: 39.4 kg

DRUGS (15)
  1. TACROLIMUS [Suspect]
     Indication: LUPUS NEPHRITIS
     Dosage: SEE IMAGE
     Route: 048
     Dates: start: 20071122, end: 20071227
  2. TACROLIMUS [Suspect]
     Indication: LUPUS NEPHRITIS
     Dosage: SEE IMAGE
     Route: 048
     Dates: start: 20080311, end: 20080728
  3. TACROLIMUS [Suspect]
     Indication: LUPUS NEPHRITIS
     Dosage: SEE IMAGE
     Route: 048
     Dates: start: 20071228, end: 20080310
  4. TACROLIMUS [Suspect]
     Indication: LUPUS NEPHRITIS
     Dosage: SEE IMAGE
     Route: 048
     Dates: start: 20081115, end: 20091015
  5. TACROLIMUS [Suspect]
     Indication: LUPUS NEPHRITIS
     Dosage: SEE IMAGE
     Route: 048
     Dates: start: 20080729, end: 20080929
  6. TACROLIMUS [Suspect]
     Indication: LUPUS NEPHRITIS
     Dosage: SEE IMAGE
     Route: 048
     Dates: start: 20091016, end: 20110223
  7. TACROLIMUS [Suspect]
     Indication: LUPUS NEPHRITIS
     Dosage: SEE IMAGE
     Route: 048
     Dates: start: 20080930, end: 20081114
  8. PERSANTIN [Concomitant]
  9. ACTONEL [Concomitant]
  10. LEUPLIN (LEUPRORELIN ACETATE) [Concomitant]
  11. METHYLPREDNISOLONE [Concomitant]
  12. NEORAL [Concomitant]
  13. PHENYTOIN [Concomitant]
  14. PREDNISOLONE [Concomitant]
  15. INCREMIN (FERRIC PYROPHOSPHATE) [Concomitant]

REACTIONS (6)
  - IRON DEFICIENCY ANAEMIA [None]
  - LOSS OF CONSCIOUSNESS [None]
  - NEUROPSYCHIATRIC LUPUS [None]
  - RASH [None]
  - COUGH [None]
  - MENORRHAGIA [None]
